FAERS Safety Report 9269508 (Version 1)
Quarter: 2013Q2

REPORT INFORMATION
  Report Type: Spontaneous
  Country: US (occurrence: US)
  Receive Date: 20130503
  Receipt Date: 20130503
  Transmission Date: 20140414
  Serious: Yes (Hospitalization)
  Sender: FDA-Public Use
  Company Number: US-BAYER-2013-052652

PATIENT
  Age: 22 Year
  Sex: Female

DRUGS (3)
  1. GIANVI [Suspect]
     Dosage: UNK
     Dates: start: 2007, end: 20120819
  2. YAZ [Suspect]
  3. LUNESTA [Concomitant]

REACTIONS (1)
  - Pulmonary embolism [None]
